FAERS Safety Report 6121703-7 (Version None)
Quarter: 2009Q1

REPORT INFORMATION
  Report Type: 
  Country: None (occurrence: None)
  Receive Date: 20090313
  Receipt Date: 20090313
  Transmission Date: 20090719
  Serious: Yes (Hospitalization)
  Sender: FDA-Public Use
  Company Number: None

PATIENT
  Age: 67 Year
  Sex: Male
  Weight: 94.3 kg

DRUGS (2)
  1. LINEZOLID [Suspect]
     Indication: ENTEROCOCCAL INFECTION
     Dosage: 600 MG BID PO
     Route: 048
     Dates: start: 20090112, end: 20090118
  2. SUNITINIB [Suspect]
     Dosage: 50 MG EVERY DAY PO
     Route: 048
     Dates: start: 20081219, end: 20090118

REACTIONS (6)
  - ENTEROCOCCAL INFECTION [None]
  - INFECTION [None]
  - MALNUTRITION [None]
  - NEOPLASM MALIGNANT [None]
  - PANCYTOPENIA [None]
  - SEPSIS [None]
